FAERS Safety Report 15907179 (Version 1)
Quarter: 2019Q1

REPORT INFORMATION
  Report Type: Spontaneous
  Country: US (occurrence: US)
  Receive Date: 20190111
  Receipt Date: 20190111
  Transmission Date: 20190417
  Serious: Yes (Other)
  Sender: FDA-Public Use
  Company Number: None

PATIENT
  Age: 79 Year
  Sex: Female
  Weight: 88 kg

DRUGS (14)
  1. HYDRALAZINE [Suspect]
     Active Substance: HYDRALAZINE HYDROCHLORIDE
     Indication: HYPERTENSION
     Dosage: ?          QUANTITY:1 TABLET;?
     Route: 048
     Dates: start: 20181127, end: 20181130
  2. ASPIRIN. [Concomitant]
     Active Substance: ASPIRIN
  3. AMLODIPINE/VALSARTAN [Concomitant]
     Active Substance: AMLODIPINE\VALSARTAN
  4. GABAPENTIN. [Concomitant]
     Active Substance: GABAPENTIN
  5. MULTI VIT [Concomitant]
     Active Substance: VITAMINS
  6. CLONIOLINE [Concomitant]
  7. COLESTIPAL [Concomitant]
  8. PRESER VISION VIT [Concomitant]
  9. BISTOLIC [Concomitant]
  10. MAGNESIUM [Concomitant]
     Active Substance: MAGNESIUM
  11. COLESTIPAL [Concomitant]
  12. NAPROXEN. [Concomitant]
     Active Substance: NAPROXEN
  13. VIT D-3 [Concomitant]
  14. NITROGLYCERINE [Concomitant]
     Active Substance: NITROGLYCERIN

REACTIONS (2)
  - Headache [None]
  - Drug intolerance [None]
